FAERS Safety Report 12398259 (Version 2)
Quarter: 2016Q3

REPORT INFORMATION
  Report Type: Spontaneous
  Country: US (occurrence: US)
  Receive Date: 20160524
  Receipt Date: 20160715
  Transmission Date: 20161109
  Serious: Yes (Death, Hospitalization)
  Sender: FDA-Public Use
  Company Number: US-JNJFOC-20160519736

PATIENT
  Age: 84 Year
  Sex: Female
  Weight: 54 kg

DRUGS (8)
  1. IMBRUVICA [Suspect]
     Active Substance: IBRUTINIB
     Indication: CHRONIC LYMPHOCYTIC LEUKAEMIA
     Dosage: UNK
     Route: 065
     Dates: start: 2015, end: 20160516
  2. PRIMIDONE. [Concomitant]
     Active Substance: PRIMIDONE
  3. XANAX [Concomitant]
     Active Substance: ALPRAZOLAM
  4. ALLOPURINOL. [Concomitant]
     Active Substance: ALLOPURINOL
  5. PROPRANOLOL [Concomitant]
     Active Substance: PROPRANOLOL\PROPRANOLOL HYDROCHLORIDE
  6. ACYCLOVIR. [Concomitant]
     Active Substance: ACYCLOVIR
  7. GABAPENTIN. [Concomitant]
     Active Substance: GABAPENTIN
  8. LISINOPRIL. [Concomitant]
     Active Substance: LISINOPRIL

REACTIONS (5)
  - Death [Fatal]
  - Diverticulitis [Not Recovered/Not Resolved]
  - Hyperkalaemia [Not Recovered/Not Resolved]
  - Hypercalcaemia [Not Recovered/Not Resolved]
  - Renal failure [Not Recovered/Not Resolved]

NARRATIVE: CASE EVENT DATE: 20160516
